FAERS Safety Report 4989772-5 (Version None)
Quarter: 2006Q2

REPORT INFORMATION
  Report Type: 
  Country: None (occurrence: None)
  Receive Date: 20060501
  Receipt Date: 20060413
  Transmission Date: 20061013
  Serious: Yes (Hospitalization)
  Sender: FDA-Public Use
  Company Number: 107867ISR

PATIENT
  Age: 40 Year
  Sex: Female

DRUGS (1)
  1. GLATIRAMER ACETATE [Suspect]
     Indication: MULTIPLE SCLEROSIS
     Dosage: 20 MILLIGRAM SUBCUTANEOUS
     Route: 058
     Dates: start: 20030328

REACTIONS (7)
  - BREAST DISORDER [None]
  - DISCOMFORT [None]
  - GASTRIC DISORDER [None]
  - GASTROINTESTINAL STROMAL TUMOUR [None]
  - LABORATORY TEST ABNORMAL [None]
  - SCAR [None]
  - UTERINE LEIOMYOMA [None]
